FAERS Safety Report 15489235 (Version 33)
Quarter: 2021Q4

REPORT INFORMATION
  Report Type: Spontaneous
  Country: US (occurrence: US)
  Receive Date: 20181011
  Receipt Date: 20211019
  Transmission Date: 20220303
  Serious: Yes (Other)
  Sender: FDA-Public Use
  Company Number: US-PFIZER INC-2018409772

PATIENT
  Age: 76 Year
  Sex: Male

DRUGS (5)
  1. SUTENT [Suspect]
     Active Substance: SUNITINIB MALATE
     Indication: Renal cancer
     Dosage: 37.5 MG, UNKNOWN FREQUENCY
  2. SUTENT [Suspect]
     Active Substance: SUNITINIB MALATE
     Dosage: 25 MG, CYCLIC (TAKE 1 CAPSULE DAILY, 2 WEEKS ON THEN 1 WEEK OFF)
     Route: 048
  3. SUTENT [Suspect]
     Active Substance: SUNITINIB MALATE
     Dosage: 37.5 MG, CYCLIC (TAKE 1 CAPSULE PO DALY 2 WEEKS ON THEN 1 WEEK OFF)
     Route: 048
  4. SUTENT [Suspect]
     Active Substance: SUNITINIB MALATE
     Dosage: 37.5 MG, CYCLIC (TAKE THE MEDICATION FOR ONE WEEK)
  5. SUTENT [Suspect]
     Active Substance: SUNITINIB MALATE
     Dosage: UNK, CYCLIC(2 WEEKS ON, 1 WEEK OFF FOR A TOTAL OF 21 DAYS)

REACTIONS (62)
  - Diabetes mellitus inadequate control [Unknown]
  - Hallucination [Unknown]
  - Blindness [Unknown]
  - Feeling abnormal [Unknown]
  - Oral discomfort [Unknown]
  - Glossodynia [Unknown]
  - Tongue discomfort [Unknown]
  - Constipation [Unknown]
  - Oral pain [Unknown]
  - Thyroid disorder [Recovering/Resolving]
  - Emotional disorder [Unknown]
  - Muscle spasms [Unknown]
  - Lacrimal disorder [Unknown]
  - Abdominal pain upper [Unknown]
  - Bowel movement irregularity [Unknown]
  - Spinal disorder [Unknown]
  - Pain [Unknown]
  - Mobility decreased [Unknown]
  - Tooth disorder [Unknown]
  - Dysphonia [Unknown]
  - Memory impairment [Not Recovered/Not Resolved]
  - Somnolence [Not Recovered/Not Resolved]
  - Cough [Unknown]
  - Blood thyroid stimulating hormone increased [Unknown]
  - Decreased appetite [Unknown]
  - Fluid intake reduced [Unknown]
  - Weight decreased [Unknown]
  - Visual field defect [Unknown]
  - Hypoacusis [Unknown]
  - Limb injury [Unknown]
  - Frequent bowel movements [Unknown]
  - Fatigue [Not Recovered/Not Resolved]
  - Neutrophil count decreased [Unknown]
  - Platelet count decreased [Recovering/Resolving]
  - Asthenia [Unknown]
  - Limb discomfort [Unknown]
  - Erythema [Unknown]
  - Palmar erythema [Unknown]
  - White blood cell count decreased [Unknown]
  - Red blood cell count decreased [Recovering/Resolving]
  - Immune system disorder [Unknown]
  - Skin atrophy [Unknown]
  - Back disorder [Unknown]
  - Nasopharyngitis [Unknown]
  - Diarrhoea [Not Recovered/Not Resolved]
  - Feeling cold [Unknown]
  - Hypoacusis [Unknown]
  - Flatulence [Unknown]
  - Blood pressure increased [Unknown]
  - Vertigo [Unknown]
  - Swollen tongue [Unknown]
  - Platelet count abnormal [Not Recovered/Not Resolved]
  - Malaise [Unknown]
  - Neoplasm progression [Unknown]
  - Contusion [Unknown]
  - Fall [Unknown]
  - Mass [Unknown]
  - Blood creatinine increased [Unknown]
  - Confusional state [Unknown]
  - Tenderness [Unknown]
  - Product dose omission issue [Unknown]
  - Product prescribing error [Unknown]
